FAERS Safety Report 23780027 (Version 1)
Quarter: 2024Q2

REPORT INFORMATION
  Report Type: Other
  Country: US (occurrence: US)
  Receive Date: 20240424
  Receipt Date: 20240424
  Transmission Date: 20240715
  Serious: Yes (Life-Threatening, Hospitalization, Other)
  Sender: FDA-Public Use
  Company Number: US-Innogenix, LLC-2155956

PATIENT
  Age: 68 Year
  Sex: Female

DRUGS (6)
  1. BACLOFEN [Suspect]
     Active Substance: BACLOFEN
     Indication: Muscle spasms
     Route: 065
  2. GABAPENTIN [Suspect]
     Active Substance: GABAPENTIN
     Route: 065
  3. NIFEDIPINE [Concomitant]
     Active Substance: NIFEDIPINE
     Route: 065
  4. HYDRALAZINE [Concomitant]
     Active Substance: HYDRALAZINE HYDROCHLORIDE
     Route: 065
  5. DOXAZOSIN [Concomitant]
     Active Substance: DOXAZOSIN MESYLATE
     Route: 065
  6. CARVEDILOL [Concomitant]
     Active Substance: CARVEDILOL
     Route: 065

REACTIONS (2)
  - Mental status changes [Unknown]
  - Toxicity to various agents [Unknown]
